FAERS Safety Report 8587391-5 (Version None)
Quarter: 2012Q3

REPORT INFORMATION
  Report Type: 
  Country: None (occurrence: None)
  Receive Date: 20120810
  Receipt Date: 20111117
  Transmission Date: 20120928
  Serious: No
  Sender: FDA-Public Use
  Company Number: US-ASTRAZENECA-2011SE70369

PATIENT
  Age: 56 Year
  Sex: Female
  Weight: 81.6 kg

DRUGS (8)
  1. VITAMIN D [Concomitant]
  2. SEROQUEL [Suspect]
     Indication: DEPRESSION
     Route: 048
     Dates: start: 20070101
  3. XANAX [Concomitant]
  4. VICODIN [Concomitant]
  5. SEROQUEL [Suspect]
     Indication: SLEEP DISORDER
     Route: 048
     Dates: start: 20070101
  6. ARIMIDEX [Suspect]
     Route: 048
  7. ALPRAZOLAM [Concomitant]
     Indication: PANIC ATTACK
  8. PEPCID [Concomitant]
     Indication: DYSPEPSIA

REACTIONS (10)
  - VISION BLURRED [None]
  - DRUG DOSE OMISSION [None]
  - EPISTAXIS [None]
  - DRUG INEFFECTIVE FOR UNAPPROVED INDICATION [None]
  - VISUAL IMPAIRMENT [None]
  - DIZZINESS [None]
  - ARTHRALGIA [None]
  - GASTROOESOPHAGEAL REFLUX DISEASE [None]
  - DEPRESSION [None]
  - TREMOR [None]
